FAERS Safety Report 8069073-1 (Version None)
Quarter: 2012Q1

REPORT INFORMATION
  Report Type: 
  Country: None (occurrence: None)
  Receive Date: 20120125
  Receipt Date: 20111026
  Transmission Date: 20120608
  Serious: Yes (Other)
  Sender: FDA-Public Use
  Company Number: CA-JNJFOC-20120105970

PATIENT
  Sex: Female
  Weight: 53 kg

DRUGS (7)
  1. REMICADE [Suspect]
     Dosage: 5 MG/KG
     Route: 042
     Dates: start: 20111012
  2. PREDNISONE [Concomitant]
     Route: 065
     Dates: start: 20111012
  3. COLACE [Concomitant]
     Dosage: 1 CAPSULE
     Route: 065
  4. REMICADE [Suspect]
     Indication: ANKYLOSING SPONDYLITIS
     Dosage: 5 MG/KG, 2ND TREATMENT (INFUSION)
     Route: 042
  5. PREDNISONE [Concomitant]
     Route: 065
     Dates: start: 20111015
  6. REMICADE [Suspect]
     Indication: COLITIS ULCERATIVE
     Dosage: 5 MG/KG, 2ND TREATMENT (INFUSION)
     Route: 042
  7. REMICADE [Suspect]
     Dosage: 5 MG/KG
     Route: 042
     Dates: start: 20111012

REACTIONS (6)
  - MENOPAUSAL SYMPTOMS [None]
  - DIZZINESS [None]
  - BLOOD PRESSURE DECREASED [None]
  - INFUSION RELATED REACTION [None]
  - HEADACHE [None]
  - PALPITATIONS [None]
